FAERS Safety Report 17669512 (Version 1)
Quarter: 2020Q2

REPORT INFORMATION
  Report Type: Spontaneous
  Country: US (occurrence: US)
  Receive Date: 20200414
  Receipt Date: 20200414
  Transmission Date: 20200713
  Serious: Yes (Hospitalization)
  Sender: FDA-Public Use
  Company Number: None

PATIENT
  Age: 40 Year
  Sex: Female
  Weight: 88 kg

DRUGS (4)
  1. NIVOLUMAB [Suspect]
     Active Substance: NIVOLUMAB
  2. REGORAFENIB. [Concomitant]
     Active Substance: REGORAFENIB
     Indication: COLORECTAL CANCER
     Route: 042
     Dates: start: 20200330
  3. REGORAFENIB. [Suspect]
     Active Substance: REGORAFENIB
     Indication: COLORECTAL CANCER
     Route: 048
     Dates: start: 20200330
  4. NIVOLUMAB [Concomitant]
     Active Substance: NIVOLUMAB
     Dates: start: 20200330

REACTIONS (4)
  - Rash [None]
  - Chills [None]
  - Laboratory test abnormal [None]
  - Pyrexia [None]

NARRATIVE: CASE EVENT DATE: 20200413
